FAERS Safety Report 4429458-9 (Version None)
Quarter: 2004Q3

REPORT INFORMATION
  Report Type: 
  Country: None (occurrence: None)
  Receive Date: 20040816
  Receipt Date: 20040803
  Transmission Date: 20050211
  Serious: Yes (Hospitalization, Other)
  Sender: FDA-Public Use
  Company Number: 2003024602

PATIENT
  Age: 34 Year
  Sex: Male

DRUGS (9)
  1. LIPITOR [Suspect]
     Indication: ILL-DEFINED DISORDER
     Dosage: 40 MG (40 MG, 1 IN 1 D), ORAL
     Route: 048
     Dates: start: 20010601
  2. CLARITHROMYCIN [Suspect]
     Indication: ILL-DEFINED DISORDER
     Dosage: 1000 MG (500 MG, 2 IN 1 D), ORAL
     Route: 048
     Dates: start: 20020901
  3. KALETRA [Suspect]
     Indication: ILL-DEFINED DISORDER
  4. LAMIVUDINE (LAMIVUDINE) [Concomitant]
  5. EFAVIRENZ (EFAVIRENZ) [Concomitant]
  6. SAQUINAVIR (SAQUINAVIR) [Concomitant]
  7. CEFUROXIME [Concomitant]
  8. RITONAVIR (RITONAVIR) [Concomitant]
  9. SODIUM BICARBONATE IN PLASTIC CONTAINER [Concomitant]

REACTIONS (8)
  - DRUG INTERACTION [None]
  - DRUG LEVEL INCREASED [None]
  - HYPOKINESIA [None]
  - LOBAR PNEUMONIA [None]
  - MOTOR DYSFUNCTION [None]
  - RHABDOMYOLYSIS [None]
  - SENSORY DISTURBANCE [None]
  - SENSORY LOSS [None]
